FAERS Safety Report 13345156 (Version 1)
Quarter: 2017Q1

REPORT INFORMATION
  Report Type: Report from Study
  Country: US (occurrence: US)
  Receive Date: 20170317
  Receipt Date: 20170317
  Transmission Date: 20170428
  Serious: No
  Sender: FDA-Public Use
  Company Number: PHEH2017US007815

PATIENT
  Sex: Female

DRUGS (1)
  1. COSENTYX [Suspect]
     Active Substance: SECUKINUMAB
     Indication: PSORIASIS
     Dosage: 300 MG, QMO
     Route: 058
     Dates: start: 20170117

REACTIONS (5)
  - Oral pain [Unknown]
  - Tongue discomfort [Unknown]
  - Oral herpes [Not Recovered/Not Resolved]
  - Glossodynia [Unknown]
  - Food allergy [Unknown]
